FAERS Safety Report 6530829-5 (Version None)
Quarter: 2010Q1

REPORT INFORMATION
  Report Type: 
  Country: None (occurrence: None)
  Receive Date: 20100108
  Receipt Date: 20090324
  Transmission Date: 20100710
  Serious: No
  Sender: FDA-Public Use
  Company Number: A0775076A

PATIENT
  Age: 78 Year
  Sex: Female

DRUGS (6)
  1. OMACOR [Suspect]
     Indication: DRUG USE FOR UNKNOWN INDICATION
     Dosage: 1CAP PER DAY
     Route: 048
     Dates: start: 20050101
  2. INSULIN GLARGINE [Concomitant]
  3. GLIPIZIDE [Concomitant]
  4. LASIX [Concomitant]
  5. LIPITOR [Concomitant]
  6. PLAVIX [Concomitant]

REACTIONS (5)
  - ABDOMINAL DISCOMFORT [None]
  - DYSPEPSIA [None]
  - ERUCTATION [None]
  - INCORRECT STORAGE OF DRUG [None]
  - MEDICATION ERROR [None]
